FAERS Safety Report 23198783 (Version 1)
Quarter: 2023Q4

REPORT INFORMATION
  Report Type: Spontaneous
  Country: CN (occurrence: CN)
  Receive Date: 20231117
  Receipt Date: 20231117
  Transmission Date: 20240110
  Serious: Yes (Other)
  Sender: FDA-Public Use
  Company Number: CN-PFIZER INC-PV202300187222

PATIENT
  Age: 4 Year
  Sex: Male
  Weight: 15 kg

DRUGS (3)
  1. METHYLPREDNISOLONE SODIUM SUCCINATE [Suspect]
     Active Substance: METHYLPREDNISOLONE SODIUM SUCCINATE
     Indication: Henoch-Schonlein purpura
     Dosage: 20 MG, 2X/DAY
     Route: 041
     Dates: start: 20231024, end: 20231026
  2. METHYLPREDNISOLONE SODIUM SUCCINATE [Suspect]
     Active Substance: METHYLPREDNISOLONE SODIUM SUCCINATE
     Dosage: 16 MG, 2X/DAY
     Route: 041
     Dates: start: 20231027, end: 20231028
  3. METHYLPREDNISOLONE SODIUM SUCCINATE [Suspect]
     Active Substance: METHYLPREDNISOLONE SODIUM SUCCINATE
     Dosage: 12 MG, 2X/DAY
     Route: 041
     Dates: start: 20231029, end: 20231030

REACTIONS (2)
  - Hypokalaemia [Recovering/Resolving]
  - Off label use [Unknown]

NARRATIVE: CASE EVENT DATE: 20231028
